FAERS Safety Report 24557785 (Version 4)
Quarter: 2025Q3

REPORT INFORMATION
  Report Type: Report from Study
  Country: US (occurrence: US)
  Receive Date: 20241028
  Receipt Date: 20250710
  Transmission Date: 20251021
  Serious: No
  Sender: SUNOVION
  Company Number: US-SMPA-2024SPA004246AA

PATIENT

DRUGS (3)
  1. ORGOVYX [Suspect]
     Active Substance: RELUGOLIX
     Indication: Prostate cancer
     Dosage: 360 MG, SINGLE
     Route: 048
     Dates: start: 20240828, end: 20240828
  2. ORGOVYX [Suspect]
     Active Substance: RELUGOLIX
     Dosage: 120 MG, QD
     Route: 048
     Dates: start: 20240829
  3. XTANDI [Concomitant]
     Active Substance: ENZALUTAMIDE
     Route: 065

REACTIONS (9)
  - Restless legs syndrome [Unknown]
  - Irritability [Unknown]
  - Tooth disorder [Unknown]
  - Hot flush [Unknown]
  - Weight increased [Unknown]
  - Asthenia [Unknown]
  - Middle insomnia [Unknown]
  - Insomnia [Unknown]
  - Myalgia [Unknown]
